FAERS Safety Report 7776649-5 (Version None)
Quarter: 2011Q3

REPORT INFORMATION
  Report Type: 
  Country: None (occurrence: None)
  Receive Date: 20110926
  Receipt Date: 20110912
  Transmission Date: 20111222
  Serious: No
  Sender: FDA-Public Use
  Company Number: US-B.I. PHARMACEUTICALS,INC./RIDGEFIELD-2011-BP-22079BP

PATIENT
  Age: 86 Year
  Sex: Female

DRUGS (14)
  1. COUMADIN [Concomitant]
     Indication: CARDIAC FAILURE CONGESTIVE
     Route: 048
  2. LISINOPRIL [Concomitant]
     Indication: HYPERTENSION
     Route: 048
  3. LIPITOR [Concomitant]
     Indication: BLOOD CHOLESTEROL INCREASED
     Route: 048
  4. TOLNAFTATE [Concomitant]
     Indication: ONYCHOMYCOSIS
     Route: 061
  5. RITALIN [Concomitant]
     Indication: CEREBROVASCULAR ACCIDENT
     Route: 048
  6. NORVASC [Concomitant]
     Indication: HYPERTENSION
     Route: 048
  7. LASIX [Concomitant]
     Indication: CARDIAC FAILURE CONGESTIVE
     Route: 048
  8. DIGOXIN [Concomitant]
     Indication: CARDIAC FAILURE CONGESTIVE
     Route: 048
  9. ALBUTEROL [Concomitant]
     Route: 055
  10. SPIRIVA [Suspect]
     Indication: WHEEZING
     Dosage: 18 MCG
     Route: 055
     Dates: start: 20110801
  11. TOPROL-XL [Concomitant]
     Indication: HYPERTENSION
     Route: 048
  12. CYMBALTA [Concomitant]
     Indication: DEPRESSION
     Route: 048
  13. POTASSIUM [Concomitant]
     Indication: ELECTROLYTE SUBSTITUTION THERAPY
     Route: 048
  14. FLOMAX [Concomitant]
     Indication: URINE ABNORMALITY
     Route: 048

REACTIONS (2)
  - URINARY INCONTINENCE [None]
  - URINARY RETENTION [None]
